FAERS Safety Report 7124900-7 (Version None)
Quarter: 2010Q4

REPORT INFORMATION
  Report Type: 
  Country: None (occurrence: None)
  Receive Date: 20101129
  Receipt Date: 20101124
  Transmission Date: 20110411
  Serious: Yes (Death, Other)
  Sender: FDA-Public Use
  Company Number: BR-B.I. PHARMACEUTICALS,INC./RIDGEFIELD-2010-BR-02766BR

PATIENT
  Age: 82 Year
  Sex: Female

DRUGS (1)
  1. PRADAXA [Suspect]
     Indication: HIP ARTHROPLASTY

REACTIONS (4)
  - DRUG INEFFECTIVE [None]
  - EMPHYSEMA [None]
  - PNEUMONIA [None]
  - PULMONARY EMBOLISM [None]
